FAERS Safety Report 19987208 (Version 1)
Quarter: 2021Q4

REPORT INFORMATION
  Report Type: Spontaneous
  Country: JP (occurrence: JP)
  Receive Date: 20211022
  Receipt Date: 20211022
  Transmission Date: 20220303
  Serious: Yes (Hospitalization, Other)
  Sender: FDA-Public Use
  Company Number: JP-GLAXOSMITHKLINE-JP2021JPN215783

PATIENT
  Age: 90 Year
  Sex: Female
  Weight: 43 kg

DRUGS (19)
  1. ZANTAC [Suspect]
     Active Substance: RANITIDINE HYDROCHLORIDE
     Dosage: 75 MG, BID, AFTER BREAKFAST AND DINNER
     Route: 048
  2. FLAVOXATE HYDROCHLORIDE [Suspect]
     Active Substance: FLAVOXATE HYDROCHLORIDE
     Dosage: 200 MG, TID
     Route: 048
  3. ETIZOLAM [Suspect]
     Active Substance: ETIZOLAM
     Dosage: 0.5 MG, QD, BEFORE BEDTIME
     Route: 048
  4. BROTIZOLAM [Suspect]
     Active Substance: BROTIZOLAM
     Dosage: 0.25 MG, QD, BEFORE BEDTIME
     Route: 048
  5. SENNA EXTRACT (NOS) [Concomitant]
     Dosage: 60 MG, BID, AFTER BREAKFAST AND DINNER
  6. DOMPERIDONE [Concomitant]
     Active Substance: DOMPERIDONE
     Dosage: 10 MG, TID, AFTER MEALS
     Route: 048
  7. DOMPERIDONE [Concomitant]
     Active Substance: DOMPERIDONE
     Dosage: 10 MG, PRN
     Route: 048
  8. SUCRALFATE [Concomitant]
     Active Substance: SUCRALFATE
     Dosage: 1 G, TID, AFTER MEALS
  9. AMBROXOL HYDROCHLORIDE TABLET [Concomitant]
     Dosage: 15 MG, TID, AFTER MEALS
  10. PRAVASTATIN NA TABLETS [Concomitant]
     Indication: Dyslipidaemia
     Dosage: 10 MG, QD, AFTER BREAKFAST
  11. CEFCAPENE PIVOXIL HYDROCHLORIDE HYDRATE [Concomitant]
     Active Substance: CEFCAPENE PIVOXIL HYDROCHLORIDE HYDRATE
     Dosage: 100 MG, TID, AFTER MEALS
  12. TIPEPIDINE HIBENZATE [Concomitant]
     Active Substance: TIPEPIDINE HIBENZATE
     Dosage: 20 MG, TID, AFTER MEALS
  13. CLOSTRIDIUM BUTYRICUM TABLETS [Concomitant]
     Dosage: 1 TAB, TID, AFTER MEALS
  14. EDOXABAN TOSYLATE [Concomitant]
     Active Substance: EDOXABAN TOSYLATE
     Indication: Deep vein thrombosis
     Dosage: 30 MG, QD, AFTER BREAKFAST
  15. TULOBUTEROL TAPE [Concomitant]
     Dosage: 1 SHEET(2MG)
  16. LEVOFLOXACIN [Concomitant]
     Active Substance: LEVOFLOXACIN
     Dosage: 500 MG, QD, AFTER DINNER
  17. GLUCONSAN K TABLET [Concomitant]
     Dosage: 10 MEQ, QD, AFTER BREAKFAST
  18. LANSOPRAZOLE-OD TABLETS [Concomitant]
     Dosage: 15 MG, QD, AFTER BREAKFAST
  19. SUVOREXANT [Concomitant]
     Active Substance: SUVOREXANT
     Dosage: 15 MG, QD, BEFORE BEDTIME

REACTIONS (15)
  - Delirium [Unknown]
  - Renal disorder [Unknown]
  - Hypokalaemia [Recovering/Resolving]
  - Spinal compression fracture [Unknown]
  - Back pain [Unknown]
  - Fall [Unknown]
  - Ataxia [Unknown]
  - Decreased appetite [Recovering/Resolving]
  - Malnutrition [Unknown]
  - Hypophagia [Recovering/Resolving]
  - Weight decreased [Unknown]
  - Body mass index decreased [Unknown]
  - Inflammation [Recovering/Resolving]
  - Pyrexia [Recovering/Resolving]
  - Dry mouth [Unknown]
